FAERS Safety Report 13266373 (Version 1)
Quarter: 2017Q1

REPORT INFORMATION
  Report Type: Report from Study
  Country: JP (occurrence: JP)
  Receive Date: 20170223
  Receipt Date: 20170223
  Transmission Date: 20170428
  Serious: Yes (Death, Other)
  Sender: FDA-Public Use
  Company Number: JP-GILEAD-2017-0259301

PATIENT
  Age: 38 Year
  Sex: Male

DRUGS (16)
  1. BERASUS [Concomitant]
     Active Substance: BERAPROST SODIUM
     Indication: PULMONARY EMBOLISM
     Dosage: UNK
     Dates: end: 20120923
  2. NU-LOTAN [Concomitant]
     Active Substance: LOSARTAN POTASSIUM
     Dosage: UNK
  3. HIRNAMIN                           /00038601/ [Concomitant]
     Active Substance: LEVOMEPROMAZINE
     Dosage: UNK
  4. GASMOTIN [Concomitant]
     Active Substance: MOSAPRIDE CITRATE
     Indication: GASTRITIS PROPHYLAXIS
     Dosage: UNK
     Dates: end: 20120722
  5. AMBRISENTAN [Suspect]
     Active Substance: AMBRISENTAN
     Indication: PULMONARY EMBOLISM
     Dosage: 2.5 MG, QD
     Route: 048
     Dates: start: 20120319, end: 20120415
  6. LEXOTAN [Concomitant]
     Active Substance: BROMAZEPAM
     Dosage: UNK
  7. AMBRISENTAN [Suspect]
     Active Substance: AMBRISENTAN
     Dosage: 7.5 MG, QD
     Route: 048
     Dates: start: 20120416, end: 20120722
  8. ADCIRCA [Concomitant]
     Active Substance: TADALAFIL
     Indication: PULMONARY EMBOLISM
     Dosage: UNK
  9. SEROQUEL [Concomitant]
     Active Substance: QUETIAPINE FUMARATE
     Dosage: UNK
  10. BENZALIN                           /00036201/ [Concomitant]
     Active Substance: NITRAZEPAM
     Dosage: UNK
  11. AMBRISENTAN [Suspect]
     Active Substance: AMBRISENTAN
     Dosage: 10 MG, QD
     Route: 048
     Dates: start: 20120723, end: 20140630
  12. LULLAN [Concomitant]
     Active Substance: PEROSPIRONE HYDROCHLORIDE
     Dosage: UNK
  13. TAKEPRON [Concomitant]
     Active Substance: LANSOPRAZOLE
     Indication: GASTRITIS PROPHYLAXIS
     Dosage: UNK
  14. WARFARIN [Concomitant]
     Active Substance: WARFARIN
     Indication: PULMONARY EMBOLISM
     Dosage: UNK
  15. GASLON [Concomitant]
     Active Substance: IRSOGLADINE MALEATE
     Indication: GASTRITIS PROPHYLAXIS
     Dosage: UNK
     Dates: start: 20120723
  16. CARELOAD [Concomitant]
     Active Substance: BERAPROST SODIUM
     Indication: PULMONARY EMBOLISM
     Dosage: UNK
     Dates: start: 20120924

REACTIONS (4)
  - Nausea [Recovered/Resolved]
  - Off label use [Recovered/Resolved]
  - Aspiration [Fatal]
  - Suffocation feeling [Fatal]

NARRATIVE: CASE EVENT DATE: 20120319
